FAERS Safety Report 4396409-5 (Version None)
Quarter: 2004Q3

REPORT INFORMATION
  Report Type: 
  Country: None (occurrence: None)
  Receive Date: 20040709
  Receipt Date: 20040629
  Transmission Date: 20050211
  Serious: Yes (Death)
  Sender: FDA-Public Use
  Company Number: HQWYE462514APR04

PATIENT
  Age: 64 Year
  Sex: Female

DRUGS (5)
  1. RHINADVIL (IBUPROFEN/PSEUDOEPHEDRINE, TABLET) [Suspect]
     Dosage: UNSPECIFIED DOSE THREE TIMES DAILY; ORAL
     Route: 048
     Dates: start: 20040217, end: 20040219
  2. NECYRANE (RITIOMETAN MAGNESIUM, ) [Suspect]
     Dosage: UNKNOWN DOSE 3 TIMES DAILY; NASAL
     Route: 045
     Dates: start: 20040217, end: 20040219
  3. LYSOPAINE (BACITRACIN/LYSOZYME/PAPAIN) [Concomitant]
  4. HAVLANE (LOPRAZOLAM MESILATE) [Concomitant]
  5. DEXTROMETHORPHAN HYDROBROMIDE (DEXTROMETHORPHAN HYDROBROMIDE) [Concomitant]

REACTIONS (13)
  - CELLULITIS [None]
  - DISSEMINATED INTRAVASCULAR COAGULATION [None]
  - DRUG HYPERSENSITIVITY [None]
  - HYPOXIA [None]
  - LUNG DISORDER [None]
  - MEDIASTINITIS [None]
  - MULTI-ORGAN FAILURE [None]
  - NECROSIS [None]
  - PLEURAL EFFUSION [None]
  - PULMONARY OEDEMA [None]
  - RENAL FAILURE [None]
  - SEPTIC SHOCK [None]
  - STREPTOCOCCAL INFECTION [None]
